FAERS Safety Report 5062362-4 (Version None)
Quarter: 2006Q3

REPORT INFORMATION
  Report Type: 
  Country: None (occurrence: None)
  Receive Date: 20060726
  Receipt Date: 20060721
  Transmission Date: 20061208
  Serious: Yes (Hospitalization)
  Sender: FDA-Public Use
  Company Number: US-GLAXOSMITHKLINE-A0613390A

PATIENT
  Sex: Male

DRUGS (9)
  1. PAXIL CR [Suspect]
     Indication: PANIC DISORDER
     Dosage: 12.5MG PER DAY
     Route: 048
     Dates: start: 20060601, end: 20060701
  2. PREVACID [Concomitant]
  3. CLONAZEPAM [Concomitant]
  4. LEXIVA [Concomitant]
  5. BACTRIM [Concomitant]
  6. ZERIT [Concomitant]
  7. AZT [Concomitant]
  8. XANAX [Concomitant]
  9. OXYGEN [Concomitant]

REACTIONS (16)
  - ADVERSE EVENT [None]
  - ANOREXIA [None]
  - ANXIETY [None]
  - DEHYDRATION [None]
  - DIZZINESS [None]
  - DRUG WITHDRAWAL SYNDROME [None]
  - FEELING ABNORMAL [None]
  - GAIT DISTURBANCE [None]
  - HEADACHE [None]
  - HYPERHIDROSIS [None]
  - INSOMNIA [None]
  - IRRITABILITY [None]
  - MOOD SWINGS [None]
  - NAUSEA [None]
  - SKIN DISCOLOURATION [None]
  - WEIGHT DECREASED [None]
